FAERS Safety Report 21672465 (Version 1)
Quarter: 2022Q4

REPORT INFORMATION
  Report Type: Spontaneous
  Country: FR (occurrence: FR)
  Receive Date: 20221202
  Receipt Date: 20221202
  Transmission Date: 20230113
  Serious: Yes (Hospitalization, Other)
  Sender: FDA-Public Use
  Company Number: FR-AFSSAPS-TS20222418

PATIENT
  Age: 71 Year
  Sex: Male
  Weight: 55 kg

DRUGS (5)
  1. CARBOPLATIN [Suspect]
     Active Substance: CARBOPLATIN
     Indication: Epithelioid mesothelioma
     Dosage: 600 MILLIGRAM, ONCE TOTAL
     Route: 042
     Dates: start: 20220804
  2. ALIMTA [Suspect]
     Active Substance: PEMETREXED DISODIUM
     Indication: Epithelioid mesothelioma
     Dosage: 775 MILLIGRAM, ONCE TOTAL
     Route: 042
     Dates: start: 20220804
  3. BEVACIZUMAB [Suspect]
     Active Substance: BEVACIZUMAB
     Indication: Epithelioid mesothelioma
     Dosage: 825 MILLIGRAM
     Route: 042
     Dates: start: 20220804, end: 20220804
  4. OPDIVO [Suspect]
     Active Substance: NIVOLUMAB
     Indication: Epithelioid mesothelioma
     Dosage: 360 MILLIGRAM, 3 WEEK
     Route: 042
     Dates: start: 20220209
  5. YERVOY [Suspect]
     Active Substance: IPILIMUMAB
     Indication: Epithelioid mesothelioma
     Dosage: 60 MILLIGRAM, 3 WEEK
     Route: 042
     Dates: start: 20220209

REACTIONS (1)
  - Organising pneumonia [Recovering/Resolving]

NARRATIVE: CASE EVENT DATE: 20220928
